FAERS Safety Report 6035418-7 (Version None)
Quarter: 2009Q1

REPORT INFORMATION
  Report Type: 
  Country: None (occurrence: None)
  Receive Date: 20090113
  Receipt Date: 20090105
  Transmission Date: 20090719
  Serious: No
  Sender: FDA-Public Use
  Company Number: US-JNJFOC-20090100235

PATIENT
  Sex: Female
  Weight: 76.66 kg

DRUGS (3)
  1. DURAGESIC-100 [Suspect]
     Indication: BONE PAIN
     Route: 062
  2. LIPITOR [Concomitant]
     Indication: BLOOD CHOLESTEROL
     Route: 048
  3. UNSPECIFIED MEDICATION [Concomitant]

REACTIONS (3)
  - FEELING ABNORMAL [None]
  - INCORRECT DRUG ADMINISTRATION DURATION [None]
  - SOMNOLENCE [None]
